FAERS Safety Report 9267306 (Version 2)
Quarter: 2013Q2

REPORT INFORMATION
  Report Type: Spontaneous
  Country: JP (occurrence: JP)
  Receive Date: 20130502
  Receipt Date: 20130528
  Transmission Date: 20140414
  Serious: Yes (Hospitalization)
  Sender: FDA-Public Use
  Company Number: JP-PFIZER INC-2013130544

PATIENT
  Age: 81 Year
  Sex: Male

DRUGS (2)
  1. XALATAN [Suspect]
     Dosage: UNK
     Route: 047
  2. DUOTRAV [Concomitant]
     Dosage: UNK
     Route: 047

REACTIONS (2)
  - Liver disorder [Unknown]
  - Diabetes mellitus [Unknown]
